FAERS Safety Report 6760442-6 (Version None)
Quarter: 2010Q2

REPORT INFORMATION
  Report Type: 
  Country: None (occurrence: None)
  Receive Date: 20100608
  Receipt Date: 20100527
  Transmission Date: 20101027
  Serious: Yes (Other)
  Sender: FDA-Public Use
  Company Number: PHHY2010FR34683

PATIENT
  Sex: Male

DRUGS (4)
  1. STALEVO 100 [Suspect]
     Indication: PARKINSON'S DISEASE
     Dosage: 1000/250/62.5MG DAILY
     Route: 048
     Dates: start: 20080801, end: 20080823
  2. CIRCADIN [Suspect]
     Dosage: 1 DF, QD
     Route: 048
     Dates: start: 20080801, end: 20080823
  3. SIFROL [Suspect]
     Dosage: 0.7 MG, TID
     Dates: start: 20070601
  4. TRIVASTAL [Suspect]
     Dosage: 50 MG, TID
     Route: 048
     Dates: start: 20070601

REACTIONS (5)
  - COMPULSIVE SHOPPING [None]
  - MIDDLE INSOMNIA [None]
  - PATHOLOGICAL GAMBLING [None]
  - PSYCHOMOTOR HYPERACTIVITY [None]
  - SLEEP DISORDER [None]
